FAERS Safety Report 8922897 (Version 1)
Quarter: 2012Q4

REPORT INFORMATION
  Report Type: Spontaneous
  Country: US (occurrence: None)
  Receive Date: 20121115
  Receipt Date: 20121115
  Transmission Date: 20130627
  Serious: Yes (Hospitalization)
  Sender: FDA-Public Use
  Company Number: None

PATIENT
  Age: 47 Year
  Sex: Female
  Weight: 68.95 kg

DRUGS (1)
  1. DIAZEPAM 5MG/ML HOSPIRA [Suspect]
     Route: 042
     Dates: start: 20120731, end: 20120731

REACTIONS (5)
  - Dyspnoea [None]
  - Blood pressure decreased [None]
  - Cough [None]
  - Vomiting [None]
  - Wheezing [None]
